FAERS Safety Report 10872723 (Version 1)
Quarter: 2015Q1

REPORT INFORMATION
  Report Type: Spontaneous
  Country: FR (occurrence: FR)
  Receive Date: 20150227
  Receipt Date: 20150227
  Transmission Date: 20150721
  Serious: Yes (Hospitalization)
  Sender: FDA-Public Use
  Company Number: FR-ORION CORPORATION ORION PHARMA-ENTC2015-0063

PATIENT
  Sex: Male

DRUGS (4)
  1. LEPONEX [Suspect]
     Active Substance: CLOZAPINE
     Route: 065
  2. LEPONEX [Suspect]
     Active Substance: CLOZAPINE
     Route: 065
  3. STALEVO [Suspect]
     Active Substance: CARBIDOPA\ENTACAPONE\LEVODOPA
     Indication: PARKINSONISM
     Dosage: AT 6 AM STALEVO 150 (150/37.5/200 MG), AT 11 AM STALEVO 150, AT 6 PM STALEVO 100 (100/25/200 MG) AND
     Route: 065
     Dates: start: 2010
  4. STALEVO [Suspect]
     Active Substance: CARBIDOPA\ENTACAPONE\LEVODOPA
     Dosage: AT 6 AM STALEVO 150 (150/37.5/200 MG), AT 11 AM STALEVO 100 (100/25/200 MG), AT 6 PM STALEVO 100 AND
     Route: 065

REACTIONS (3)
  - Paralysis [Recovered/Resolved]
  - Confusional state [Recovered/Resolved]
  - Anxiety [Recovered/Resolved]

NARRATIVE: CASE EVENT DATE: 2014
